FAERS Safety Report 4958840-6 (Version None)
Quarter: 2006Q1

REPORT INFORMATION
  Report Type: 
  Country: None (occurrence: None)
  Receive Date: 20060324
  Receipt Date: 20060315
  Transmission Date: 20060701
  Serious: Yes (Life-Threatening, Hospitalization, Disabling)
  Sender: FDA-Public Use
  Company Number: HQWYE458823JAN06

PATIENT
  Age: 74 Year
  Sex: Male

DRUGS (3)
  1. MYLOTARG [Suspect]
     Indication: ACUTE MYELOID LEUKAEMIA
     Dosage: 9 MG/M^2 1X PER 1 DAY INTRAVENOUS DRIP
     Route: 041
     Dates: start: 20051121, end: 20051121
  2. CYTARABINE [Concomitant]
  3. ACLARUBICIN HYDROCHLORIDE (ACLARUBICIN HYDROCHLORIDE) [Concomitant]

REACTIONS (12)
  - ACUTE MYELOID LEUKAEMIA [None]
  - ASCITES [None]
  - BLOOD POTASSIUM DECREASED [None]
  - DISEASE PROGRESSION [None]
  - FATIGUE [None]
  - FEBRILE NEUTROPENIA [None]
  - HYPERKALAEMIA [None]
  - PLEURAL EFFUSION [None]
  - PULMONARY OEDEMA [None]
  - RENAL DISORDER [None]
  - URINE OUTPUT DECREASED [None]
  - VENTRICULAR TACHYCARDIA [None]
